FAERS Safety Report 19906111 (Version 1)
Quarter: 2021Q3

REPORT INFORMATION
  Report Type: Spontaneous
  Country: US (occurrence: US)
  Receive Date: 20210930
  Receipt Date: 20210930
  Transmission Date: 20211014
  Serious: No
  Sender: FDA-Public Use
  Company Number: None

PATIENT
  Sex: Female
  Weight: 50.35 kg

DRUGS (23)
  1. MEDROL [Concomitant]
     Active Substance: METHYLPREDNISOLONE
  2. MORPHINE SULFATE ER [Concomitant]
     Active Substance: MORPHINE SULFATE
  3. ONDANSETRON [Concomitant]
     Active Substance: ONDANSETRON
  4. TAMOXIFEN [Concomitant]
     Active Substance: TAMOXIFEN
  5. TRANSDERMAL SCOPOLAMINE [Concomitant]
  6. BACITRACIN?DIMETHICONE?ZINC OXIDE [Concomitant]
  7. BACLOFEN. [Concomitant]
     Active Substance: BACLOFEN
  8. GABAPENTIN. [Concomitant]
     Active Substance: GABAPENTIN
  9. METHOCARBAMOL. [Concomitant]
     Active Substance: METHOCARBAMOL
  10. NORCO [Concomitant]
     Active Substance: ACETAMINOPHEN\HYDROCODONE BITARTRATE
  11. LETROZOLE. [Concomitant]
     Active Substance: LETROZOLE
  12. MS CONTIN [Concomitant]
     Active Substance: MORPHINE SULFATE
  13. KELFEX [Concomitant]
  14. NAPROXEN. [Concomitant]
     Active Substance: NAPROXEN
  15. DEXAMETHASONE. [Concomitant]
     Active Substance: DEXAMETHASONE
  16. LIDOCAINE?PRILOCAINE [Concomitant]
     Active Substance: LIDOCAINE\PRILOCAINE
  17. VERZENIO [Suspect]
     Active Substance: ABEMACICLIB
     Indication: BREAST CANCER FEMALE
     Dosage: ?          OTHER DOSE:1 TABLET;?
     Route: 048
  18. BUTRANS [Concomitant]
     Active Substance: BUPRENORPHINE
  19. PROCHLORPERAZINE. [Concomitant]
     Active Substance: PROCHLORPERAZINE
  20. EFFEXOR XR [Concomitant]
     Active Substance: VENLAFAXINE HYDROCHLORIDE
  21. IMODIUM A?D [Concomitant]
     Active Substance: LOPERAMIDE HYDROCHLORIDE
  22. MIRTAZAPINE. [Concomitant]
     Active Substance: MIRTAZAPINE
  23. TART CHERRY ADVANCED [Concomitant]

REACTIONS (1)
  - Disease progression [None]
